FAERS Safety Report 19513741 (Version 5)
Quarter: 2021Q4

REPORT INFORMATION
  Report Type: Report from Study
  Country: PR (occurrence: PR)
  Receive Date: 20210710
  Receipt Date: 20211119
  Transmission Date: 20220303
  Serious: Yes (Other)
  Sender: FDA-Public Use
  Company Number: PR-ABBVIE-21K-131-3983589-00

PATIENT
  Age: 63 Year
  Sex: Female
  Weight: 81.720 kg

DRUGS (5)
  1. HUMIRA [Suspect]
     Active Substance: ADALIMUMAB
     Indication: Rheumatoid arthritis
     Route: 058
     Dates: start: 20140808
  2. HUMIRA [Suspect]
     Active Substance: ADALIMUMAB
     Route: 058
  3. ELASOMERAN [Concomitant]
     Active Substance: ELASOMERAN
     Indication: COVID-19 immunisation
     Route: 030
     Dates: start: 20210313, end: 20210313
  4. ELASOMERAN [Concomitant]
     Active Substance: ELASOMERAN
     Route: 030
     Dates: start: 20210414, end: 20210414
  5. ELASOMERAN [Concomitant]
     Active Substance: ELASOMERAN
     Route: 030
     Dates: start: 20210902, end: 20210902

REACTIONS (2)
  - Neoplasm skin [Recovered/Resolved]
  - Dysphonia [Not Recovered/Not Resolved]

NARRATIVE: CASE EVENT DATE: 20200101
